FAERS Safety Report 13714713 (Version 3)
Quarter: 2018Q3

REPORT INFORMATION
  Report Type: Spontaneous
  Country: US (occurrence: US)
  Receive Date: 20170704
  Receipt Date: 20180820
  Transmission Date: 20181010
  Serious: Yes (Other)
  Sender: FDA-Public Use
  Company Number: US-JNJFOC-20170507391

PATIENT
  Sex: Female

DRUGS (1)
  1. INVOKANA [Suspect]
     Active Substance: CANAGLIFLOZIN
     Indication: BLOOD GLUCOSE DECREASED
     Route: 048
     Dates: start: 20140101, end: 20150501

REACTIONS (2)
  - Diabetic ketoacidosis [Unknown]
  - Acute kidney injury [Unknown]
